FAERS Safety Report 7093288-2 (Version None)
Quarter: 2010Q4

REPORT INFORMATION
  Report Type: 
  Country: None (occurrence: None)
  Receive Date: 20101110
  Receipt Date: 20101101
  Transmission Date: 20110411
  Serious: Yes (Other)
  Sender: FDA-Public Use
  Company Number: US-PFIZER INC-2010139105

PATIENT
  Sex: Male
  Weight: 63.492 kg

DRUGS (4)
  1. LIPITOR [Suspect]
     Indication: BLOOD CHOLESTEROL INCREASED
     Dosage: 20 MG, DAILY
     Route: 048
     Dates: start: 20080101
  2. LISINOPRIL [Suspect]
     Indication: HYPERTENSION
     Dosage: UNK
  3. ACETYLSALICYLIC ACID [Concomitant]
     Dosage: UNK
  4. HYZAAR [Concomitant]
     Indication: HYPERTENSION
     Dosage: 22.5 MG, UNK

REACTIONS (4)
  - BLOOD PRESSURE DECREASED [None]
  - DEHYDRATION [None]
  - FATIGUE [None]
  - PLATELET COUNT DECREASED [None]
